FAERS Safety Report 11689459 (Version 2)
Quarter: 2017Q4

REPORT INFORMATION
  Report Type: Spontaneous
  Country: FI (occurrence: FI)
  Receive Date: 20151102
  Receipt Date: 20171205
  Transmission Date: 20180320
  Serious: Yes (Other)
  Sender: FDA-Public Use
  Company Number: FI-TEVA-554751ISR

PATIENT
  Age: 45 Year
  Sex: Female

DRUGS (6)
  1. TAMOFEN [Suspect]
     Active Substance: TAMOXIFEN CITRATE
     Dosage: 20 MILLIGRAM DAILY;
     Dates: start: 201308, end: 20141217
  2. PALBOCICLIB, PFIZER [Suspect]
     Active Substance: PALBOCICLIB
     Dosage: AFTER NEUTROPENIA, DOSE 100 MG 3 WEEKS, THEN WEEK PAUSE THEN 75 MG ONCE DAILY
  3. PALBOCICLIB, PFIZER [Suspect]
     Active Substance: PALBOCICLIB
     Dosage: 75 MILLIGRAM DAILY;
  4. PALBOCICLIB, PFIZER [Suspect]
     Active Substance: PALBOCICLIB
     Indication: BREAST CANCER METASTATIC
     Dosage: 125 MG FOR 3 WEEKS
     Dates: start: 201312
  5. MESALAZINE [Concomitant]
     Active Substance: MESALAMINE
     Indication: COLITIS ULCERATIVE
     Dosage: 3200 MILLIGRAM DAILY;
  6. LETROZOL RATIOPHARM 2,5 MG [Suspect]
     Active Substance: LETROZOLE
     Route: 048
     Dates: start: 201412

REACTIONS (5)
  - Oedema [Not Recovered/Not Resolved]
  - Hypoaesthesia [None]
  - Colitis ulcerative [Recovered/Resolved]
  - Neutropenia [Not Recovered/Not Resolved]
  - Portal vein thrombosis [Recovered/Resolved]

NARRATIVE: CASE EVENT DATE: 20131210
